FAERS Safety Report 10271965 (Version 1)
Quarter: 2014Q3

REPORT INFORMATION
  Report Type: Spontaneous
  Country: IT (occurrence: IT)
  Receive Date: 20140702
  Receipt Date: 20140702
  Transmission Date: 20150326
  Serious: Yes (Hospitalization)
  Sender: FDA-Public Use
  Company Number: PHHY2014IT079116

PATIENT
  Age: 57 Year
  Sex: Male

DRUGS (4)
  1. ZOLEDRONATE [Suspect]
     Active Substance: ZOLEDRONIC ACID
     Dosage: 4 MG, QMO
     Route: 042
     Dates: start: 200412
  2. INTERFERON ALFA NOS [Concomitant]
     Active Substance: INTERFERON ALFA-2A OR INTERFERON ALFA-2B
  3. ZOLEDRONATE [Suspect]
     Active Substance: ZOLEDRONIC ACID
     Dosage: 4 MG, QMO
     Route: 042
     Dates: start: 200306, end: 200312
  4. PAMIDRONATE [Suspect]
     Active Substance: PAMIDRONATE DISODIUM
     Dosage: 90 MG, ON A MONTHLY BASE
     Route: 042
     Dates: start: 199802, end: 200306

REACTIONS (13)
  - Hypertrophy [Unknown]
  - Mastication disorder [Unknown]
  - Skin ulcer [Unknown]
  - Osteolysis [Unknown]
  - Osteonecrosis of jaw [Unknown]
  - Bone density increased [Unknown]
  - Bone density decreased [Unknown]
  - Erythema [Unknown]
  - Nose deformity [Unknown]
  - Exposed bone in jaw [Unknown]
  - Purulent discharge [Unknown]
  - Chronic sinusitis [Unknown]
  - Dysphagia [Unknown]
